FAERS Safety Report 5600191-0 (Version None)
Quarter: 2008Q1

REPORT INFORMATION
  Report Type: 
  Country: None (occurrence: None)
  Receive Date: 20080117
  Receipt Date: 20080117
  Transmission Date: 20080703
  Serious: Yes (Other)
  Sender: FDA-Public Use
  Company Number: None

PATIENT
  Age: 2 Year
  Sex: Male
  Weight: 15.4 kg

DRUGS (3)
  1. CARBOPLATIN [Suspect]
     Indication: OPTIC NERVE GLIOMA
     Dosage: 105MG EVERY MONTH IV DRIP
     Route: 041
     Dates: start: 20070829, end: 20080103
  2. VINCRISTINE [Concomitant]
  3. PREMEDS [Concomitant]

REACTIONS (1)
  - RESPIRATORY DISTRESS [None]
